FAERS Safety Report 15229195 (Version 4)
Quarter: 2023Q1

REPORT INFORMATION
  Report Type: Report from Study
  Country: CA (occurrence: CA)
  Receive Date: 20180801
  Receipt Date: 20230131
  Transmission Date: 20230417
  Serious: Yes (Hospitalization, Other)
  Sender: FDA-Public Use
  Company Number: CA-TAKEDA-2018TUS023560

PATIENT
  Age: 53 Year
  Sex: Male

DRUGS (5)
  1. VEDOLIZUMAB [Suspect]
     Active Substance: VEDOLIZUMAB
     Indication: Crohn^s disease
     Dosage: 300 MILLIGRAM
     Route: 042
     Dates: start: 20170727
  2. VEDOLIZUMAB [Suspect]
     Active Substance: VEDOLIZUMAB
     Dosage: 300 MILLIGRAM
     Route: 042
  3. VEDOLIZUMAB [Suspect]
     Active Substance: VEDOLIZUMAB
     Dosage: 300 MILLIGRAM
     Route: 042
  4. PREDNISONE [Concomitant]
     Active Substance: PREDNISONE
     Dosage: UNK
  5. EFINACONAZOLE [Concomitant]
     Active Substance: EFINACONAZOLE
     Dosage: UNK UNK, QD

REACTIONS (2)
  - Intestinal obstruction [Recovering/Resolving]
  - Crohn^s disease [Recovering/Resolving]

NARRATIVE: CASE EVENT DATE: 20180724
